FAERS Safety Report 5954058-9 (Version None)
Quarter: 2008Q4

REPORT INFORMATION
  Report Type: 
  Country: None (occurrence: None)
  Receive Date: 20081114
  Receipt Date: 20081103
  Transmission Date: 20090506
  Serious: Yes (Life-Threatening)
  Sender: FDA-Public Use
  Company Number: IN-PFIZER INC-2008094912

PATIENT
  Age: 45 Year
  Sex: Female
  Weight: 62 kg

DRUGS (7)
  1. DOXORUBICIN HYDROCHLORIDE [Suspect]
  2. FENTANYL [Suspect]
  3. THIOPENTAL SODIUM [Suspect]
  4. ROCURONIUM BROMIDE [Suspect]
  5. ISOFLURANE [Suspect]
  6. FLUOROURACIL [Concomitant]
  7. CYCLOPHOSPHAMIDE [Concomitant]

REACTIONS (2)
  - CIRCULATORY COLLAPSE [None]
  - ELECTROMECHANICAL DISSOCIATION [None]
